FAERS Safety Report 24836635 (Version 1)
Quarter: 2025Q1

REPORT INFORMATION
  Report Type: Spontaneous
  Country: NL (occurrence: NL)
  Receive Date: 20250113
  Receipt Date: 20250113
  Transmission Date: 20250409
  Serious: Yes (Hospitalization)
  Sender: TEVA
  Company Number: None

PATIENT
  Age: 20 Year
  Sex: Female
  Weight: 71 kg

DRUGS (5)
  1. BUDESONIDE [Suspect]
     Active Substance: BUDESONIDE
     Indication: Colitis ulcerative
     Dosage: CAPSULE MSR / BRAND NAME NOT SPECIFIED 1 PIECE 3 TIMES A DAY
     Route: 048
     Dates: start: 20241023, end: 20241207
  2. ETHINYL ESTRADIOL\LEVONORGESTREL [Concomitant]
     Active Substance: ETHINYL ESTRADIOL\LEVONORGESTREL
     Indication: Product used for unknown indication
     Route: 048
  3. FLUTICASONE FUROATE\VILANTEROL TRIFENATATE [Concomitant]
     Active Substance: FLUTICASONE FUROATE\VILANTEROL TRIFENATATE
     Indication: Product used for unknown indication
     Route: 055
  4. PENTASA [Suspect]
     Active Substance: MESALAMINE
     Indication: Colitis ulcerative
     Dosage: GRANULES MVA IN SACHET 1 X PER DAY 1 PIECE
     Route: 048
     Dates: start: 20240711, end: 20241207
  5. VENTOLIN [Concomitant]
     Active Substance: ALBUTEROL SULFATE
     Indication: Product used for unknown indication
     Route: 055

REACTIONS (1)
  - Pancreatitis acute [Recovering/Resolving]
